FAERS Safety Report 17921583 (Version 1)
Quarter: 2020Q2

REPORT INFORMATION
  Report Type: Spontaneous
  Country: DK (occurrence: DK)
  Receive Date: 20200622
  Receipt Date: 20200622
  Transmission Date: 20200714
  Serious: Yes (Hospitalization, Other)
  Sender: FDA-Public Use
  Company Number: DK-BRISTOL-MYERS SQUIBB COMPANY-BMS-2020-047020

PATIENT
  Age: 58 Year
  Sex: Male

DRUGS (2)
  1. IPILIMUMAB [Suspect]
     Active Substance: IPILIMUMAB
     Indication: PRODUCT USED FOR UNKNOWN INDICATION
     Dosage: UNK
     Route: 065
     Dates: start: 20190920
  2. NIVOLUMAB [Suspect]
     Active Substance: NIVOLUMAB
     Indication: PRODUCT USED FOR UNKNOWN INDICATION
     Dosage: UNK
     Route: 065
     Dates: start: 20190920

REACTIONS (17)
  - Myocarditis [Unknown]
  - Polyneuropathy [Unknown]
  - Hepatitis [Unknown]
  - Atrioventricular block complete [Unknown]
  - Diplopia [Unknown]
  - Pyrexia [Unknown]
  - Malaise [Unknown]
  - Dizziness [Unknown]
  - Myalgia [Unknown]
  - Polymyositis [Unknown]
  - Headache [Unknown]
  - Ocular myasthenia [Unknown]
  - Myositis [Unknown]
  - Rash [Unknown]
  - Musculoskeletal stiffness [Unknown]
  - Myopathy [Unknown]
  - Hypophysitis [Unknown]

NARRATIVE: CASE EVENT DATE: 20190926
